FAERS Safety Report 17565965 (Version 1)
Quarter: 2020Q1

REPORT INFORMATION
  Report Type: Spontaneous
  Country: AT (occurrence: AT)
  Receive Date: 20200320
  Receipt Date: 20200320
  Transmission Date: 20200409
  Serious: Yes (Hospitalization, Other)
  Sender: FDA-Public Use
  Company Number: AT-SA-2020SA067113

PATIENT
  Age: 67 Year
  Sex: Male

DRUGS (1)
  1. IVADAL [Suspect]
     Active Substance: ZOLPIDEM TARTRATE
     Dosage: 10 MG, TOTAL
     Route: 065
     Dates: start: 20200303, end: 20200303

REACTIONS (2)
  - Paranoia [Recovered/Resolved]
  - Cholestatic liver injury [Recovering/Resolving]

NARRATIVE: CASE EVENT DATE: 20200303
